FAERS Safety Report 23446637 (Version 4)
Quarter: 2024Q2

REPORT INFORMATION
  Report Type: Spontaneous
  Country: US (occurrence: US)
  Receive Date: 20240126
  Receipt Date: 20240506
  Transmission Date: 20240715
  Serious: Yes (Other)
  Sender: FDA-Public Use
  Company Number: US-PFIZER INC-PV202200089873

PATIENT
  Age: 93 Year
  Sex: Female

DRUGS (7)
  1. IBRANCE [Suspect]
     Active Substance: PALBOCICLIB
     Dosage: 75 MG ONCE DAILY FOR 14 DAYS THEN STOP FOR 14 DAYS, REPEAT
     Route: 048
     Dates: start: 20210518
  2. IBRANCE [Suspect]
     Active Substance: PALBOCICLIB
     Dosage: 75 MG ONCE DAILY FOR 14 DAYS THEN STOP FOR 14 DAYS, REPEAT
     Route: 048
     Dates: start: 20210913
  3. IBRANCE [Suspect]
     Active Substance: PALBOCICLIB
     Dosage: 75 MG ONCE DAILY FOR 14 DAYS THEN STOP FOR 14 DAYS, REPEAT
     Route: 048
     Dates: start: 20220318
  4. IBRANCE [Suspect]
     Active Substance: PALBOCICLIB
     Dosage: 75 MG ONCE DAILY FOR 14 DAYS THEN STOP FOR 14 DAYS, REPEAT
     Route: 048
     Dates: start: 20220527
  5. IBRANCE [Suspect]
     Active Substance: PALBOCICLIB
     Dosage: 75 MG ONCE DAILY FOR 14 DAYS THEN STOP FOR 14 DAYS, REPEAT
     Route: 048
     Dates: start: 20220825
  6. IBRANCE [Suspect]
     Active Substance: PALBOCICLIB
     Dosage: 75 MG ONCE DAILY FOR 14 DAYS THEN STOP FOR 14 DAYS, REPEAT
     Route: 048
     Dates: start: 20220826
  7. IBRANCE [Suspect]
     Active Substance: PALBOCICLIB
     Dosage: 15 DAYS AND OFF 15 DAYS

REACTIONS (5)
  - Dementia [Not Recovered/Not Resolved]
  - Off label use [Unknown]
  - Product use issue [Unknown]
  - Headache [Recovered/Resolved]
  - Fall [Unknown]

NARRATIVE: CASE EVENT DATE: 20210518
